FAERS Safety Report 10972717 (Version 1)
Quarter: 2015Q1

REPORT INFORMATION
  Report Type: Other
  Country: GB (occurrence: GB)
  Receive Date: 20150331
  Receipt Date: 20150331
  Transmission Date: 20150721
  Serious: Yes (Other)
  Sender: FDA-Public Use
  Company Number: GB-MYLANLABS-2015M1008944

PATIENT

DRUGS (5)
  1. ROCURONIUM [Suspect]
     Active Substance: ROCURONIUM BROMIDE
     Indication: ANAESTHESIA
     Dosage: 100 MG, UNK
     Route: 042
     Dates: start: 20150302, end: 20150302
  2. MIDAZOLAM [Concomitant]
     Active Substance: MIDAZOLAM\MIDAZOLAM HYDROCHLORIDE
     Dosage: UNK
  3. SEVOFLURANE. [Concomitant]
     Active Substance: SEVOFLURANE
     Dosage: UNK
  4. FENTANYL. [Concomitant]
     Active Substance: FENTANYL
     Dosage: UNK
  5. PROPOFOL. [Concomitant]
     Active Substance: PROPOFOL
     Dosage: UNK

REACTIONS (4)
  - Hypersensitivity [Recovered/Resolved]
  - Rash generalised [Recovered/Resolved]
  - Urticaria [Recovered/Resolved]
  - Blood pressure decreased [Recovered/Resolved]

NARRATIVE: CASE EVENT DATE: 20150302
